FAERS Safety Report 4954806-0 (Version None)
Quarter: 2006Q1

REPORT INFORMATION
  Report Type: 
  Country: None (occurrence: None)
  Receive Date: 20060322
  Receipt Date: 20060303
  Transmission Date: 20060701
  Serious: Yes (Life-Threatening, Hospitalization)
  Sender: FDA-Public Use
  Company Number: GB200602000337

PATIENT
  Age: 65 Year
  Sex: Female
  Weight: 55 kg

DRUGS (1)
  1. GEMZAR [Suspect]
     Indication: PANCREATIC CARCINOMA
     Dosage: 1482 MG, INTRAVENOUS
     Route: 042
     Dates: start: 20060106, end: 20060106

REACTIONS (11)
  - BILE DUCT OBSTRUCTION [None]
  - CEREBRAL ISCHAEMIA [None]
  - CEREBRAL VENTRICLE DILATATION [None]
  - CONFUSIONAL STATE [None]
  - FALL [None]
  - GRAND MAL CONVULSION [None]
  - HYPONATRAEMIA [None]
  - LEUKOENCEPHALOPATHY [None]
  - PARTIAL SEIZURES [None]
  - SEPSIS [None]
  - STATUS EPILEPTICUS [None]
